FAERS Safety Report 9888363 (Version 2)
Quarter: 2014Q2

REPORT INFORMATION
  Report Type: Spontaneous
  Country: US (occurrence: US)
  Receive Date: 20140211
  Receipt Date: 20140508
  Transmission Date: 20141212
  Serious: No
  Sender: FDA-Public Use
  Company Number: US-009507513-1402USA005020

PATIENT
  Age: 51 Year
  Sex: Female
  Weight: 72.56 kg

DRUGS (3)
  1. OXYTROL FOR WOMEN [Suspect]
     Indication: HYPERTONIC BLADDER
     Dosage: 1 DF, Q4D
     Route: 062
     Dates: start: 201309, end: 20131110
  2. MS CONTIN [Concomitant]
     Indication: PAIN
     Dosage: UNK, UNKNOWN
  3. AMBIEN [Concomitant]
     Indication: SLEEP DISORDER
     Dosage: UNK, UNKNOWN

REACTIONS (5)
  - Application site pain [Recovered/Resolved]
  - Dry skin [Unknown]
  - Application site erythema [Recovered/Resolved]
  - Application site pruritus [Unknown]
  - Rash generalised [Recovered/Resolved]
